FAERS Safety Report 19258177 (Version 1)
Quarter: 2021Q2

REPORT INFORMATION
  Report Type: Spontaneous
  Country: US (occurrence: US)
  Receive Date: 20210514
  Receipt Date: 20210514
  Transmission Date: 20210717
  Serious: Yes (Hospitalization)
  Sender: FDA-Public Use
  Company Number: None

PATIENT
  Age: 47 Year
  Sex: Male
  Weight: 141 kg

DRUGS (10)
  1. HCTZ 25MG [Concomitant]
  2. GABAPENTIN 600MG [Concomitant]
     Active Substance: GABAPENTIN
  3. IBUPROFEN. [Concomitant]
     Active Substance: IBUPROFEN
  4. LEVOTHYROXINE 150MCG [Concomitant]
     Active Substance: LEVOTHYROXINE
  5. TADALAFIL 10MG PRN [Concomitant]
  6. BENZONATATE. [Concomitant]
     Active Substance: BENZONATATE
  7. LISINOPRIL. [Concomitant]
     Active Substance: LISINOPRIL
  8. AMLODIPINE [Concomitant]
     Active Substance: AMLODIPINE BESYLATE
  9. BAMLANIVIMAB/ETESEVIMAB [Suspect]
     Active Substance: BAMLANIVIMAB\ETESEVIMAB
     Indication: COVID-19
     Dates: start: 20210510, end: 20210510
  10. NYSTATIN 100,000U/ML ORAL SUSPENSION [Concomitant]

REACTIONS (4)
  - Oxygen saturation decreased [None]
  - Dyspnoea [None]
  - Blood pressure decreased [None]
  - Mental impairment [None]

NARRATIVE: CASE EVENT DATE: 20210511
